FAERS Safety Report 9107559 (Version 1)
Quarter: 2013Q1

REPORT INFORMATION
  Report Type: Spontaneous
  Country: DE (occurrence: DE)
  Receive Date: 20130221
  Receipt Date: 20130221
  Transmission Date: 20140127
  Serious: Yes (Other)
  Sender: FDA-Public Use
  Company Number: DE-TEVA-385386GER

PATIENT
  Age: 54 Year
  Sex: Male
  Weight: 75 kg

DRUGS (2)
  1. IBUPROFEN LYSINE [Suspect]
     Indication: HEADACHE
     Route: 048
  2. SANDIMMUN OPTORAL [Concomitant]
     Indication: LYMPHOMA
     Dosage: 2 DOSAGE FORMS DAILY;
     Route: 048
     Dates: start: 2006

REACTIONS (8)
  - Altered state of consciousness [Recovered/Resolved]
  - Rash macular [Recovered/Resolved]
  - Pruritus generalised [Recovered/Resolved]
  - Palpitations [Recovered/Resolved]
  - Chest discomfort [Recovered/Resolved]
  - Hypoaesthesia oral [Recovered/Resolved]
  - Toothache [Recovered/Resolved]
  - Listless [Recovered/Resolved]
